FAERS Safety Report 6072549-X (Version None)
Quarter: 2009Q1

REPORT INFORMATION
  Report Type: 
  Country: None (occurrence: None)
  Receive Date: 20090210
  Receipt Date: 20090127
  Transmission Date: 20090719
  Serious: Yes (Other)
  Sender: FDA-Public Use
  Company Number: US-AVENTIS-200910126US

PATIENT
  Age: 59 Year
  Sex: Male

DRUGS (1)
  1. LANTUS [Suspect]
     Route: 058
     Dates: start: 20070101

REACTIONS (4)
  - BLOOD GLUCOSE DECREASED [None]
  - DEVICE FAILURE [None]
  - HYPOGLYCAEMIC UNCONSCIOUSNESS [None]
  - NO ADVERSE EVENT [None]
